FAERS Safety Report 6846144-6 (Version None)
Quarter: 2010Q3

REPORT INFORMATION
  Report Type: 
  Country: None (occurrence: None)
  Receive Date: 20100715
  Receipt Date: 20070912
  Transmission Date: 20110219
  Serious: No
  Sender: FDA-Public Use
  Company Number: US-PFIZER INC-2007076821

PATIENT
  Sex: Female
  Weight: 60.9 kg

DRUGS (5)
  1. CHANTIX [Suspect]
     Indication: SMOKING CESSATION THERAPY
     Dates: start: 20070724
  2. VITAMINS [Concomitant]
  3. ACIPHEX [Concomitant]
  4. ALL OTHER THERAPEUTIC PRODUCTS [Concomitant]
  5. LOVASTATIN [Concomitant]

REACTIONS (2)
  - NAUSEA [None]
  - VOMITING [None]
